FAERS Safety Report 16487748 (Version 1)
Quarter: 2019Q2

REPORT INFORMATION
  Report Type: Spontaneous
  Country: CN (occurrence: CN)
  Receive Date: 20190627
  Receipt Date: 20190627
  Transmission Date: 20190711
  Serious: No
  Sender: FDA-Public Use
  Company Number: CN-B. BRAUN MEDICAL INC.-2069733

PATIENT
  Age: 77 Year
  Sex: Male
  Weight: 60 kg

DRUGS (4)
  1. COMPOUND AMINO ACID (15) DIPEPTIDE (2) INJECTION [Concomitant]
     Route: 041
     Dates: start: 20190509, end: 20190515
  2. GLUCOSE INJECTION (10%) [Concomitant]
     Route: 041
     Dates: start: 20190509, end: 20190515
  3. NUTRILIPID I.V. FAT EMULSION [Suspect]
     Active Substance: SOYBEAN OIL
     Indication: NUTRITIONAL SUPPLEMENTATION
     Route: 041
     Dates: start: 20190509, end: 20190515
  4. GLUCOSE INJECTION (50%) [Concomitant]
     Route: 041
     Dates: start: 20190509, end: 20190515

REACTIONS (1)
  - Injection site phlebitis [Recovering/Resolving]

NARRATIVE: CASE EVENT DATE: 20190509
